FAERS Safety Report 18065880 (Version 1)
Quarter: 2020Q3

REPORT INFORMATION
  Report Type: Spontaneous
  Country: US (occurrence: US)
  Receive Date: 20200724
  Receipt Date: 20200724
  Transmission Date: 20201103
  Serious: Yes (Hospitalization)
  Sender: FDA-Public Use
  Company Number: None

PATIENT
  Age: 51 Year
  Sex: Male

DRUGS (6)
  1. VANCOMYCIN [Suspect]
     Active Substance: VANCOMYCIN
     Indication: OSTEOMYELITIS
     Route: 042
     Dates: start: 20200626, end: 20200714
  2. METRONIDAZOLE 500 MG ORAL TABLET [Concomitant]
     Dates: start: 20200626
  3. VANCOMYCIN [Suspect]
     Active Substance: VANCOMYCIN
     Indication: OSTEOMYELITIS
     Route: 042
     Dates: start: 20200626, end: 20200714
  4. VANCOMYCIN [Suspect]
     Active Substance: VANCOMYCIN
     Indication: CELLULITIS
     Route: 042
     Dates: start: 20200626, end: 20200714
  5. IBUPROFEN PO [Concomitant]
  6. VANCOMYCIN [Suspect]
     Active Substance: VANCOMYCIN
     Indication: CELLULITIS
     Route: 042
     Dates: start: 20200626, end: 20200714

REACTIONS (2)
  - Tubulointerstitial nephritis [None]
  - Acute kidney injury [None]

NARRATIVE: CASE EVENT DATE: 20200714
